FAERS Safety Report 5477566-6 (Version None)
Quarter: 2007Q3

REPORT INFORMATION
  Report Type: 
  Country: None (occurrence: None)
  Receive Date: 20070925
  Receipt Date: 20070830
  Transmission Date: 20080115
  Serious: No
  Sender: FDA-Public Use
  Company Number: 2007US001619

PATIENT
  Age: 40 Year
  Sex: Female

DRUGS (7)
  1. VESICARE [Suspect]
     Indication: URINARY INCONTINENCE
     Dosage: 5 MG, UID/QD, ORAL
     Route: 048
     Dates: start: 20070614, end: 20070614
  2. PROTONIX [Concomitant]
  3. CELEBREX [Concomitant]
  4. DETROL [Concomitant]
  5. BIOTIN [Concomitant]
  6. HYDROCHLOROTHIAZIDE [Concomitant]
  7. ANTIHYPERTENSIVES [Concomitant]

REACTIONS (3)
  - DIZZINESS [None]
  - HEADACHE [None]
  - VISION BLURRED [None]
